FAERS Safety Report 16005223 (Version 1)
Quarter: 2019Q1

REPORT INFORMATION
  Report Type: Spontaneous
  Country: US (occurrence: US)
  Receive Date: 20190226
  Receipt Date: 20190226
  Transmission Date: 20190418
  Serious: No
  Sender: FDA-Public Use
  Company Number: US-PFIZER INC-2018482989

PATIENT
  Age: 71 Year
  Sex: Female
  Weight: 61 kg

DRUGS (2)
  1. LYRICA [Suspect]
     Active Substance: PREGABALIN
     Indication: ARTHRALGIA
     Dosage: 75 MG, TWICE DAILY
     Route: 048
  2. LYRICA [Suspect]
     Active Substance: PREGABALIN
     Indication: FORMICATION
     Dosage: 75 MG, THRICE DAILY
     Route: 048

REACTIONS (6)
  - Stress [Unknown]
  - Back pain [Unknown]
  - Thinking abnormal [Unknown]
  - Somnambulism [Unknown]
  - Product use in unapproved indication [Unknown]
  - Neck pain [Unknown]
